FAERS Safety Report 9875955 (Version 2)
Quarter: 2014Q1

REPORT INFORMATION
  Report Type: Other
  Country: US (occurrence: US)
  Receive Date: 20140206
  Receipt Date: 20140206
  Transmission Date: 20141002
  Serious: No
  Sender: FDA-Public Use
  Company Number: US-ACORDA-ACO_35777_2013

PATIENT
  Sex: Male
  Weight: 96.6 kg

DRUGS (1)
  1. AMPYRA [Suspect]
     Indication: PRODUCT USED FOR UNKNOWN INDICATION
     Dosage: 10 MG, BID
     Route: 048
     Dates: start: 201302, end: 201302

REACTIONS (2)
  - Mental impairment [Unknown]
  - Gait disturbance [Unknown]
